FAERS Safety Report 15956449 (Version 1)
Quarter: 2019Q1

REPORT INFORMATION
  Report Type: Spontaneous
  Country: US (occurrence: US)
  Receive Date: 20190213
  Receipt Date: 20190213
  Transmission Date: 20190417
  Serious: No
  Sender: FDA-Public Use
  Company Number: US-BAYER-2019-030843

PATIENT
  Age: 83 Year
  Sex: Male
  Weight: 78.01 kg

DRUGS (5)
  1. MIRALAX [Suspect]
     Active Substance: POLYETHYLENE GLYCOL 3350
     Indication: BOWEL MOVEMENT IRREGULARITY
     Dosage: 1/2 OF 17 GRAM WITH ICED TEA DAILY
     Route: 048
  2. MIRALAX [Suspect]
     Active Substance: POLYETHYLENE GLYCOL 3350
     Indication: GASTROINTESTINAL DISORDER
     Dosage: ;1/2 OF 17 GRAM WITH ICED TEA DAILY DOSE
     Route: 048
     Dates: start: 20190210, end: 20190210
  3. VITAMINS NOS [Concomitant]
     Active Substance: VITAMINS
  4. ASPIRIN [ACETYLSALICYLIC ACID] [Concomitant]
     Active Substance: ASPIRIN
  5. VITAMIN D [Concomitant]
     Active Substance: CHOLECALCIFEROL

REACTIONS (5)
  - Product odour abnormal [Unknown]
  - Product use in unapproved indication [None]
  - Underdose [Unknown]
  - Product taste abnormal [Unknown]
  - Poor quality product administered [Unknown]

NARRATIVE: CASE EVENT DATE: 20190210
